FAERS Safety Report 10359845 (Version 1)
Quarter: 2014Q3

REPORT INFORMATION
  Report Type: Spontaneous
  Country: US (occurrence: None)
  Receive Date: 20140801
  Receipt Date: 20140801
  Transmission Date: 20150326
  Serious: Yes (Hospitalization)
  Sender: FDA-Public Use
  Company Number: None

PATIENT
  Age: 66 Year
  Sex: Female
  Weight: 69.8 kg

DRUGS (10)
  1. FUROEMIDE [Concomitant]
  2. ASPIRIN. [Concomitant]
     Active Substance: ASPIRIN
  3. VITAMIN D [Concomitant]
     Active Substance: CHOLECALCIFEROL
  4. OMEPRAZOLE. [Concomitant]
     Active Substance: OMEPRAZOLE
  5. FISH OIL [Concomitant]
     Active Substance: FISH OIL
  6. LEVOTHYROXINE [Concomitant]
     Active Substance: LEVOTHYROXINE
  7. ALLOPURINOL 300 MG [Suspect]
     Active Substance: ALLOPURINOL
     Dosage: 300 MG  QD  ORAL
     Route: 048
  8. METOPROLOL [Concomitant]
     Active Substance: METOPROLOL
  9. KCL [Concomitant]
     Active Substance: POTASSIUM CHLORIDE
  10. CALCIUM CARBONATE. [Concomitant]
     Active Substance: CALCIUM CARBONATE

REACTIONS (1)
  - Neutropenia [None]

NARRATIVE: CASE EVENT DATE: 20140729
